FAERS Safety Report 11178135 (Version 1)
Quarter: 2015Q2

REPORT INFORMATION
  Report Type: Spontaneous
  Country: US (occurrence: None)
  Receive Date: 20150609
  Receipt Date: 20150609
  Transmission Date: 20150821
  Serious: Yes (Hospitalization)
  Sender: FDA-Public Use
  Company Number: None

PATIENT
  Age: 79 Year
  Sex: Male
  Weight: 86.18 kg

DRUGS (8)
  1. ASPIRIN. [Concomitant]
     Active Substance: ASPIRIN
  2. ASPER CREAM [Concomitant]
  3. PRADAXA [Suspect]
     Active Substance: DABIGATRAN ETEXILATE MESYLATE
     Indication: ATRIAL FIBRILLATION
     Route: 048
  4. METOPROLOL [Concomitant]
     Active Substance: METOPROLOL
  5. CENTRUM SILVER [Concomitant]
     Active Substance: VITAMINS
  6. PRADAXA [Suspect]
     Active Substance: DABIGATRAN ETEXILATE MESYLATE
     Indication: CARDIOMYOPATHY
     Route: 048
  7. BENECAR [Concomitant]
  8. LOVASTATIN. [Concomitant]
     Active Substance: LOVASTATIN

REACTIONS (2)
  - Myelodysplastic syndrome [None]
  - Leukaemia [None]

NARRATIVE: CASE EVENT DATE: 20120130
